FAERS Safety Report 11144538 (Version 3)
Quarter: 2016Q1

REPORT INFORMATION
  Report Type: Spontaneous
  Country: SE (occurrence: SE)
  Receive Date: 20150526
  Receipt Date: 20160201
  Transmission Date: 20160525
  Serious: Yes (Other)
  Sender: FDA-Public Use
  Company Number: SE-ENDO PHARMACEUTICALS INC.-2015-000995

PATIENT
  Sex: Male

DRUGS (1)
  1. XIAPEX [Suspect]
     Active Substance: COLLAGENASE CLOSTRIDIUM HISTOLYTICUM
     Indication: PEYRONIE^S DISEASE
     Dosage: TWO INJECTIONS INTO THE PLAQUE, ONE FROM EACH SIDE
     Route: 065
     Dates: start: 20150519

REACTIONS (9)
  - Dysuria [Unknown]
  - Blood blister [Unknown]
  - Penile haemorrhage [Recovered/Resolved]
  - Urethral injury [Recovered/Resolved]
  - Urethritis noninfective [Recovered/Resolved]
  - Wrong technique in product usage process [Recovered/Resolved]
  - Haemorrhage [Unknown]
  - Blood urine present [Unknown]
  - Overdose [Recovered/Resolved]

NARRATIVE: CASE EVENT DATE: 20150519
